FAERS Safety Report 4536957-8 (Version None)
Quarter: 2004Q4

REPORT INFORMATION
  Report Type: 
  Country: None (occurrence: None)
  Receive Date: 20041220
  Receipt Date: 20041208
  Transmission Date: 20050328
  Serious: Yes (Life-Threatening, Hospitalization)
  Sender: FDA-Public Use
  Company Number: 2004AP05322

PATIENT
  Age: 80 Year
  Sex: Male

DRUGS (3)
  1. PLENDIL [Suspect]
     Indication: HYPERTENSION
     Dosage: 5 MG DAILY PO
     Route: 048
     Dates: start: 20040918, end: 20040918
  2. TRITACE [Concomitant]
  3. ANSIOLIN [Concomitant]

REACTIONS (2)
  - COMA [None]
  - URINARY RETENTION [None]
